FAERS Safety Report 8444069-6 (Version None)
Quarter: 2012Q2

REPORT INFORMATION
  Report Type: 
  Country: None (occurrence: None)
  Receive Date: 20120618
  Receipt Date: 20120613
  Transmission Date: 20120825
  Serious: Yes (Hospitalization, Other)
  Sender: FDA-Public Use
  Company Number: PHHY2012MX049526

PATIENT
  Sex: Female

DRUGS (3)
  1. INSULIN [Concomitant]
     Indication: DIABETES MELLITUS
     Dosage: 20 IU, PER DAY
  2. PLENDIL [Concomitant]
     Indication: BLOOD PRESSURE
     Dosage: 10 MG, DAILY
  3. DIOVAN [Suspect]
     Indication: HYPERTENSION
     Dosage: 320 MG, DAILY
     Dates: start: 20050101

REACTIONS (10)
  - EMBOLISM [None]
  - MALAISE [None]
  - BLOOD PRESSURE INADEQUATELY CONTROLLED [None]
  - CEREBROVASCULAR ACCIDENT [None]
  - BLOOD GLUCOSE DECREASED [None]
  - DEHYDRATION [None]
  - CEREBRAL ISCHAEMIA [None]
  - HEAT STROKE [None]
  - GAIT DISTURBANCE [None]
  - RENAL DISORDER [None]
